FAERS Safety Report 5488115-0 (Version None)
Quarter: 2007Q4

REPORT INFORMATION
  Report Type: 
  Country: None (occurrence: None)
  Receive Date: 20071004
  Receipt Date: 20070508
  Transmission Date: 20080405
  Serious: Yes (Other)
  Sender: FDA-Public Use
  Company Number: 2007-GWUS-0211

PATIENT
  Age: 88 Year
  Sex: Female
  Weight: 61.2356 kg

DRUGS (5)
  1. MAXAIR TM AUTOHALER [Suspect]
     Indication: WHEEZING
     Dosage: 200 MCG BID TID RESPIRATORY (INHALATION)
     Route: 055
     Dates: start: 20070504, end: 20070507
  2. LEVOFLOXACIN (LEVAQUIN) TAB [Concomitant]
  3. PREDNISONE TAB [Concomitant]
  4. FLUTICASONE PROPIONATE (ADVAIR) INHALATION RESPIRATORY (INHALATION) [Concomitant]
  5. GLYBURIDE TAB [Concomitant]

REACTIONS (1)
  - TREMOR [None]
